FAERS Safety Report 13853467 (Version 1)
Quarter: 2017Q3

REPORT INFORMATION
  Report Type: Report from Study
  Country: None (occurrence: MX)
  Receive Date: 20170809
  Receipt Date: 20170809
  Transmission Date: 20171127
  Serious: Yes (Other)
  Sender: FDA-Public Use
  Company Number: MX-ABBVIE-17K-107-2065733-00

PATIENT
  Sex: Male

DRUGS (1)
  1. HUMIRA [Suspect]
     Active Substance: ADALIMUMAB
     Indication: PSORIASIS
     Route: 058
     Dates: start: 20160111

REACTIONS (4)
  - Psoriasis [Recovering/Resolving]
  - Deafness unilateral [Not Recovered/Not Resolved]
  - Emotional distress [Recovering/Resolving]
  - Stress [Recovering/Resolving]
